FAERS Safety Report 7785567-8 (Version None)
Quarter: 2011Q3

REPORT INFORMATION
  Report Type: 
  Country: None (occurrence: None)
  Receive Date: 20110929
  Receipt Date: 20110915
  Transmission Date: 20111222
  Serious: Yes (Life-Threatening, Hospitalization)
  Sender: FDA-Public Use
  Company Number: EC-UCBSA-041258

PATIENT
  Age: 15 Year
  Sex: Female

DRUGS (1)
  1. KEPPRA [Suspect]
     Indication: CONVULSION
     Route: 048
     Dates: start: 20110801, end: 20110904

REACTIONS (7)
  - THROMBOCYTOPENIA [None]
  - VAGINAL ULCERATION [None]
  - NEUTROPENIA [None]
  - PYREXIA [None]
  - VULVOVAGINAL PAIN [None]
  - LEUKOPENIA [None]
  - GRANULOCYTOPENIA [None]
